FAERS Safety Report 18601994 (Version 1)
Quarter: 2020Q4

REPORT INFORMATION
  Report Type: Spontaneous
  Country: US (occurrence: US)
  Receive Date: 20201210
  Receipt Date: 20201210
  Transmission Date: 20210114
  Serious: Yes (Hospitalization)
  Sender: FDA-Public Use
  Company Number: US-ELI_LILLY_AND_COMPANY-US202012001123

PATIENT
  Age: 78 Year
  Sex: Male
  Weight: 105.3 kg

DRUGS (1)
  1. BAMLANIVIMAB 700MG [Suspect]
     Active Substance: BAMLANIVIMAB
     Indication: COVID-19
     Dosage: 700 MG, SINGLE
     Route: 042
     Dates: start: 20201130, end: 20201130

REACTIONS (9)
  - Atrial fibrillation [Unknown]
  - Lethargy [Unknown]
  - Confusional state [Unknown]
  - Oxygen saturation decreased [Unknown]
  - Blood lactate dehydrogenase increased [Unknown]
  - COVID-19 [Unknown]
  - Infusion related reaction [Unknown]
  - Serum ferritin increased [Unknown]
  - Vomiting [Unknown]

NARRATIVE: CASE EVENT DATE: 20201130
